FAERS Safety Report 15833510 (Version 1)
Quarter: 2019Q1

REPORT INFORMATION
  Report Type: Spontaneous
  Country: US (occurrence: US)
  Receive Date: 20190116
  Receipt Date: 20190116
  Transmission Date: 20190417
  Serious: Yes (Hospitalization, Disabling)
  Sender: FDA-Public Use
  Company Number: US-PROCTER_AND_GAMBLE-GS19002996

PATIENT
  Age: 56 Year
  Sex: Female

DRUGS (9)
  1. THYROID THERAPY [Concomitant]
     Active Substance: UNSPECIFIED INGREDIENT
  2. BISMUTH SUBSALICYLATE, UNSPECIFIED [Suspect]
     Active Substance: BISMUTH SUBSALICYLATE
     Indication: COLITIS MICROSCOPIC
     Dosage: INCREASED USE TO TITRATE SYMPTOMS
     Route: 048
  3. ANTIHYPERTENSIVES [Concomitant]
     Active Substance: UNSPECIFIED INGREDIENT
  4. BLACK COHOSH                       /01456801/ [Concomitant]
     Active Substance: BLACK COHOSH
  5. DULOXETINE. [Concomitant]
     Active Substance: DULOXETINE
     Indication: COLITIS MICROSCOPIC
  6. BISMUTH SUBSALICYLATE, UNSPECIFIED [Suspect]
     Active Substance: BISMUTH SUBSALICYLATE
     Indication: DIARRHOEA
     Dosage: 45 ML THREE TIMES DAILY (262 MG/15 ML)
     Route: 048
  7. DULOXETINE. [Concomitant]
     Active Substance: DULOXETINE
     Indication: DIARRHOEA
     Dosage: 45 MILLILITER
  8. CITALOPRAM [Concomitant]
     Active Substance: CITALOPRAM HYDROBROMIDE
  9. IRRITABLE BOWEL MEDICATION [Concomitant]

REACTIONS (28)
  - Neurological decompensation [Recovered/Resolved]
  - Psychomotor retardation [Recovered/Resolved]
  - Encephalopathy [Recovered/Resolved]
  - Gait inability [Recovered/Resolved]
  - Tremor [Recovered/Resolved]
  - Hypoglossal nerve disorder [Recovered/Resolved]
  - Intentional overdose [Recovered/Resolved]
  - Hallucination, visual [Recovered/Resolved]
  - Myoclonus [Recovered/Resolved]
  - Disorientation [Recovered/Resolved]
  - Confusional state [Recovered/Resolved]
  - Language disorder [Recovered/Resolved]
  - Disturbance in attention [Recovered/Resolved]
  - Drug level increased [Unknown]
  - Hyperreflexia [Recovered/Resolved]
  - CSF white blood cell count increased [Unknown]
  - Balance disorder [Recovered/Resolved]
  - Somnolence [Recovered/Resolved]
  - Heart rate increased [Unknown]
  - Toxicity to various agents [Recovered/Resolved]
  - Prescribed overdose [Recovered/Resolved]
  - Delirium [Recovered/Resolved]
  - Lethargy [Recovered/Resolved]
  - Dysstasia [Recovered/Resolved]
  - Intention tremor [Recovered/Resolved]
  - Muscle rigidity [Recovered/Resolved]
  - Blood pressure increased [Unknown]
  - Product prescribing error [Recovered/Resolved]
